FAERS Safety Report 26204316 (Version 1)
Quarter: 2025Q4

REPORT INFORMATION
  Report Type: Spontaneous
  Country: EU (occurrence: EU)
  Receive Date: 20251226
  Receipt Date: 20251226
  Transmission Date: 20260117
  Serious: Yes (Other)
  Sender: FRESENIUS KABI
  Company Number: None

PATIENT
  Age: 46 Year
  Sex: Female
  Weight: 55 kg

DRUGS (3)
  1. LIDOCAINE [Suspect]
     Active Substance: LIDOCAINE
     Indication: Product used for unknown indication
     Dosage: FOA-SOLUTION FOR INJECTION
     Dates: start: 20251106, end: 20251106
  2. ROPIVACAINE [Suspect]
     Active Substance: ROPIVACAINE
     Indication: Product used for unknown indication
     Dosage: FOA-SOLUTION FOR INJECTION
     Dates: start: 20251106, end: 20251106
  3. DEXAMETHASONE [Suspect]
     Active Substance: DEXAMETHASONE
     Indication: Product used for unknown indication
     Dosage: FOA-SOLUTION FOR INJECTION
     Dates: start: 20251106, end: 20251106

REACTIONS (1)
  - Laryngeal oedema [Recovered/Resolved]

NARRATIVE: CASE EVENT DATE: 20251106
